FAERS Safety Report 23745814 (Version 1)
Quarter: 2024Q2

REPORT INFORMATION
  Report Type: Other
  Country: CN (occurrence: None)
  Receive Date: 20240416
  Receipt Date: 20240416
  Transmission Date: 20240715
  Serious: Yes (Other)
  Sender: FDA-Public Use
  Company Number: CN-ROCHE-3543373

PATIENT

DRUGS (3)
  1. BEVACIZUMAB [Suspect]
     Active Substance: BEVACIZUMAB
     Indication: Squamous cell carcinoma of the cervix
     Dosage: 6-7 WEEKS DURATION.
     Route: 042
  2. CISPLATIN [Concomitant]
     Active Substance: CISPLATIN
  3. PACLITAXEL [Concomitant]
     Active Substance: PACLITAXEL
     Route: 041

REACTIONS (12)
  - Haemoglobinaemia [Unknown]
  - Leukopenia [Unknown]
  - Gastroenteritis radiation [Unknown]
  - Gastrointestinal perforation [Unknown]
  - Hypertension [Unknown]
  - Thrombocytopenia [Unknown]
  - Hepatic function abnormal [Unknown]
  - Renal impairment [Unknown]
  - Nausea [Unknown]
  - Vomiting [Unknown]
  - Cystitis radiation [Unknown]
  - Radiation proctitis [Unknown]
